FAERS Safety Report 4887449-8 (Version None)
Quarter: 2006Q1

REPORT INFORMATION
  Report Type: 
  Country: None (occurrence: None)
  Receive Date: 20060118
  Receipt Date: 20060103
  Transmission Date: 20060701
  Serious: Yes (Hospitalization)
  Sender: FDA-Public Use
  Company Number: GB 2006 0001

PATIENT
  Age: 31 Year
  Sex: Male

DRUGS (1)
  1. DOTAREM     UNKNOWN     MEGLUMINE GATOTERATE [Suspect]
     Indication: NUCLEAR MAGNETIC RESONANCE IMAGING
     Dosage: 1 ML PER DAY, INTRAVENOUS
     Route: 042
     Dates: start: 20060301

REACTIONS (2)
  - GRAND MAL CONVULSION [None]
  - LOSS OF CONSCIOUSNESS [None]
